FAERS Safety Report 4650549-1 (Version None)
Quarter: 2005Q2

REPORT INFORMATION
  Report Type: 
  Country: None (occurrence: None)
  Receive Date: 20050429
  Receipt Date: 20050418
  Transmission Date: 20051028
  Serious: Yes (Other)
  Sender: FDA-Public Use
  Company Number: HQWYE181822APR05

PATIENT
  Age: 32 Month
  Sex: Female
  Weight: 10.44 kg

DRUGS (2)
  1. CHILDREN'S ADVIL [Suspect]
     Indication: PAIN IN EXTREMITY
     Dosage: SEE IMAGE
     Dates: start: 20050410, end: 20050410
  2. CHILDREN'S ADVIL [Suspect]
     Indication: PAIN IN EXTREMITY
     Dosage: SEE IMAGE

REACTIONS (5)
  - ABASIA [None]
  - ERYTHEMA MULTIFORME [None]
  - HYPERSENSITIVITY [None]
  - JOINT SWELLING [None]
  - OEDEMA PERIPHERAL [None]
